FAERS Safety Report 22197260 (Version 1)
Quarter: 2023Q2

REPORT INFORMATION
  Report Type: Spontaneous
  Country: FR (occurrence: FR)
  Receive Date: 20230411
  Receipt Date: 20230411
  Transmission Date: 20230722
  Serious: Yes (Life-Threatening, Hospitalization, Other)
  Sender: FDA-Public Use
  Company Number: None

PATIENT
  Age: 79 Year
  Sex: Male

DRUGS (1)
  1. LOVENOX [Suspect]
     Active Substance: ENOXAPARIN SODIUM
     Indication: Thrombosis prophylaxis
     Dosage: THERAPY START DATE : DEC 2022
     Route: 058
     Dates: start: 202212

REACTIONS (2)
  - Hypovolaemic shock [Recovered/Resolved]
  - Haemoperitoneum [Recovering/Resolving]

NARRATIVE: CASE EVENT DATE: 20221229
